FAERS Safety Report 12193208 (Version 1)
Quarter: 2016Q1

REPORT INFORMATION
  Report Type: Spontaneous
  Country: US (occurrence: US)
  Receive Date: 20160319
  Receipt Date: 20160319
  Transmission Date: 20160526
  Serious: No
  Sender: FDA-Public Use
  Company Number: US-009507513-1603USA001655

PATIENT
  Sex: Female
  Weight: 53.52 kg

DRUGS (1)
  1. NEXPLANON [Suspect]
     Active Substance: ETONOGESTREL
     Indication: CONTRACEPTION
     Dosage: 1 DF, (68 MG 1 STANDARD PACKAGE PREFLAPP OF 1), ONE INSERTION/3 YEARS AGO
     Route: 059
     Dates: start: 20131126

REACTIONS (3)
  - Headache [Unknown]
  - Pain in extremity [Unknown]
  - Implant site pain [Unknown]
